FAERS Safety Report 6015575-9 (Version None)
Quarter: 2008Q4

REPORT INFORMATION
  Report Type: 
  Country: None (occurrence: None)
  Receive Date: 20081219
  Receipt Date: 20081219
  Transmission Date: 20090506
  Serious: Yes (Other)
  Sender: FDA-Public Use
  Company Number: None

PATIENT
  Age: 10 Year
  Sex: Female
  Weight: 25.855 kg

DRUGS (8)
  1. PULMICORT [Suspect]
     Indication: ASTHMA
     Dosage: 600MCG 2XDAY INHAL
     Route: 055
     Dates: start: 20061001, end: 20081127
  2. XOPENEX HFA [Concomitant]
  3. XOPENEX LIQUID [Concomitant]
  4. PULMICORT RESPULES [Concomitant]
  5. PREVACID [Concomitant]
  6. ASTELIN [Concomitant]
  7. ZYRTEC [Concomitant]
  8. FORADIL [Concomitant]

REACTIONS (4)
  - ARTHRALGIA [None]
  - BODY HEIGHT BELOW NORMAL [None]
  - HEADACHE [None]
  - MYALGIA [None]
